FAERS Safety Report 19436429 (Version 2)
Quarter: 2021Q3

REPORT INFORMATION
  Report Type: Report from Study
  Country: FR (occurrence: FR)
  Receive Date: 20210618
  Receipt Date: 20210823
  Transmission Date: 20211014
  Serious: Yes (Hospitalization)
  Sender: FDA-Public Use
  Company Number: FR-ROCHE-2643657

PATIENT
  Age: 71 Year
  Sex: Male

DRUGS (12)
  1. PARACETAMOL [Concomitant]
     Active Substance: ACETAMINOPHEN
  2. DOCETAXEL. [Suspect]
     Active Substance: DOCETAXEL
     Indication: ANAL SQUAMOUS CELL CARCINOMA
     Dosage: MOST RECENT DOSE OF LAST DOSE PRIOR TO SAE: 27/MAR/2020 (72 MG)
     Route: 042
     Dates: start: 20191220
  3. ACTISKENAN [Concomitant]
     Active Substance: MORPHINE SULFATE
  4. LYRICA [Concomitant]
     Active Substance: PREGABALIN
  5. 5?FU [Suspect]
     Active Substance: FLUOROURACIL
     Indication: ANAL SQUAMOUS CELL CARCINOMA
     Dosage: MOST RECENT DOSE OF 5?FU PRIOR TO SAE: 27/MAR/2020 (3300 MG)
     Route: 042
     Dates: start: 20191220
  6. ABSTRAL [Concomitant]
     Active Substance: FENTANYL CITRATE
  7. KARDEGIC [Concomitant]
     Active Substance: ASPIRIN DL-LYSINE
  8. SKENAN [Concomitant]
     Active Substance: MORPHINE SULFATE
  9. INNOHEP [Concomitant]
     Active Substance: TINZAPARIN SODIUM
  10. PANTOPRAZOLE [Concomitant]
     Active Substance: PANTOPRAZOLE
  11. CISPLATIN. [Suspect]
     Active Substance: CISPLATIN
     Indication: ANAL SQUAMOUS CELL CARCINOMA
     Dosage: MOST RECENT DOSE OF CISPLATIN PRIOR TO SAE: 27/MAR/2020 (73 MG)
     Route: 042
     Dates: start: 20191220
  12. ATEZOLIZUMAB. [Suspect]
     Active Substance: ATEZOLIZUMAB
     Indication: ANAL SQUAMOUS CELL CARCINOMA
     Dosage: MOST RECENT DOSE OF ATEZOLIZUMAB PRIOR TO SAE: 29/JUN/2020 (800 MG), 24/AUG/2020 (800 MG) AND 27/JUL
     Route: 042
     Dates: start: 20191220

REACTIONS (3)
  - Wound infection [Recovered/Resolved with Sequelae]
  - Surgery [Recovered/Resolved]
  - Infected neoplasm [Recovered/Resolved]

NARRATIVE: CASE EVENT DATE: 20200629
